FAERS Safety Report 9866984 (Version 1)
Quarter: 2014Q1

REPORT INFORMATION
  Report Type: Spontaneous
  Country: US (occurrence: None)
  Receive Date: 20140131
  Receipt Date: 20140131
  Transmission Date: 20141002
  Serious: Yes (Hospitalization)
  Sender: FDA-Public Use
  Company Number: 2014P1000610

PATIENT
  Age: 74 Year
  Sex: Male

DRUGS (7)
  1. LITHIUM [Suspect]
  2. BUPROPION [Concomitant]
  3. LISINOPRIL [Concomitant]
  4. FINASTERIDE [Concomitant]
  5. LOVASTATIN [Concomitant]
  6. CLONAZEPAM [Concomitant]
  7. TAMSULOSIN [Concomitant]

REACTIONS (22)
  - Toxicity to various agents [None]
  - Encephalopathy [None]
  - Asthenia [None]
  - Diarrhoea [None]
  - Hyperreflexia [None]
  - Clonus [None]
  - Hypertonia [None]
  - Tremor [None]
  - Muscle contractions involuntary [None]
  - Speech disorder [None]
  - Electrocardiogram QT prolonged [None]
  - Ventricular extrasystoles [None]
  - Tachycardia [None]
  - Ventricular tachycardia [None]
  - Sinus bradycardia [None]
  - Wandering pacemaker [None]
  - Hypotension [None]
  - Haemodialysis [None]
  - Nodal rhythm [None]
  - Atrioventricular block first degree [None]
  - Blood urea increased [None]
  - Blood creatinine increased [None]
